FAERS Safety Report 4955707-4 (Version None)
Quarter: 2006Q1

REPORT INFORMATION
  Report Type: 
  Country: None (occurrence: None)
  Receive Date: 20060328
  Receipt Date: 20060222
  Transmission Date: 20060701
  Serious: Yes (Hospitalization, Other)
  Sender: FDA-Public Use
  Company Number: US-AVENTIS-200611716US

PATIENT
  Sex: Female
  Weight: 114.99 kg

DRUGS (4)
  1. KETEK [Suspect]
     Indication: SINUSITIS
     Route: 048
     Dates: start: 20060203, end: 20060205
  2. KETEK [Suspect]
     Indication: UPPER RESPIRATORY TRACT INFECTION
     Route: 048
     Dates: start: 20060203, end: 20060205
  3. TYLENOL (CAPLET) [Concomitant]
     Dosage: DOSE: UNK
  4. FLONASE [Concomitant]
     Dosage: DOSE: UNK

REACTIONS (9)
  - ABDOMINAL DISTENSION [None]
  - ABDOMINAL PAIN UPPER [None]
  - ADENOMA BENIGN [None]
  - ADRENAL ADENOMA [None]
  - ALANINE AMINOTRANSFERASE INCREASED [None]
  - BLOOD ALKALINE PHOSPHATASE INCREASED [None]
  - BLOOD BILIRUBIN INCREASED [None]
  - ILEUS [None]
  - URTICARIA [None]
